FAERS Safety Report 10477266 (Version 1)
Quarter: 2014Q3

REPORT INFORMATION
  Report Type: Spontaneous
  Country: CA (occurrence: None)
  Receive Date: 20140923
  Receipt Date: 20140923
  Transmission Date: 20150326
  Serious: Yes (Other)
  Sender: FDA-Public Use
  Company Number: CA-017090

PATIENT
  Age: 69 Year
  Sex: Male

DRUGS (16)
  1. FIRMAGON [Suspect]
     Active Substance: DEGARELIX ACETATE
     Indication: PROSTATE CANCER
     Route: 058
     Dates: start: 20140203
  2. AMLODIPINE [Concomitant]
     Active Substance: AMLODIPINE BESYLATE
  3. VITAMIN D [Concomitant]
     Active Substance: CHOLECALCIFEROL
  4. VIT E /00110501/ [Concomitant]
  5. COVERSYL /00790702/ [Concomitant]
     Active Substance: PERINDOPRIL
  6. OMEGA 3 6 9 [Concomitant]
  7. BICALUTAMIDE. [Concomitant]
     Active Substance: BICALUTAMIDE
  8. DIAMICRON [Concomitant]
     Active Substance: GLICLAZIDE
  9. CALCIUM [Concomitant]
     Active Substance: CALCIUM
  10. INDAPAMIDE. [Concomitant]
     Active Substance: INDAPAMIDE
  11. CALCIUM [Concomitant]
     Active Substance: CALCIUM
  12. ATORVASTATIN [Concomitant]
     Active Substance: ATORVASTATIN
  13. VIT B 12 [Concomitant]
  14. METFORMIN [Concomitant]
     Active Substance: METFORMIN HYDROCHLORIDE
  15. C VIT [Concomitant]
  16. CHROMIUM [Concomitant]
     Active Substance: CHROMIC CHLORIDE\CHROMIUM

REACTIONS (2)
  - Nausea [None]
  - Vomiting [None]

NARRATIVE: CASE EVENT DATE: 20140905
